FAERS Safety Report 10077898 (Version 1)
Quarter: 2014Q2

REPORT INFORMATION
  Report Type: Spontaneous
  Country: CA (occurrence: CA)
  Receive Date: 20140415
  Receipt Date: 20140415
  Transmission Date: 20141212
  Serious: Yes (Hospitalization)
  Sender: FDA-Public Use
  Company Number: CA-AMGEN-CANSP2014025570

PATIENT
  Age: 87 Year
  Sex: Male

DRUGS (1)
  1. SENSIPAR [Suspect]
     Indication: RENAL FAILURE CHRONIC
     Dosage: 30 MG, QD
     Route: 065
     Dates: start: 20130214

REACTIONS (1)
  - Hospitalisation [Unknown]
